FAERS Safety Report 8016122-2 (Version None)
Quarter: 2011Q4

REPORT INFORMATION
  Report Type: 
  Country: None (occurrence: None)
  Receive Date: 20111228
  Receipt Date: 20111228
  Transmission Date: 20120403
  Serious: Yes (Disabling, Other)
  Sender: FDA-Public Use
  Company Number: None

PATIENT
  Sex: Female
  Weight: 64.8644 kg

DRUGS (1)
  1. OSTEO BI FLEX [Suspect]
     Indication: ARTHROPATHY
     Dosage: 2 PILLS PER DAY EVERY DAY

REACTIONS (5)
  - BONE DISORDER [None]
  - FATIGUE [None]
  - ABASIA [None]
  - RENAL DISORDER [None]
  - ARTHRALGIA [None]
